FAERS Safety Report 15352977 (Version 1)
Quarter: 2018Q3

REPORT INFORMATION
  Report Type: Spontaneous
  Country: US (occurrence: US)
  Receive Date: 20180830
  Receipt Date: 20180830
  Transmission Date: 20181010
  Serious: Yes (Life-Threatening, Hospitalization)
  Sender: FDA-Public Use
  Company Number: None

PATIENT
  Age: 86 Year
  Sex: Male
  Weight: 83 kg

DRUGS (1)
  1. DABIGATRAN [Suspect]
     Active Substance: DABIGATRAN
     Indication: ATRIAL FIBRILLATION
     Route: 048

REACTIONS (5)
  - Rectal haemorrhage [None]
  - Post procedural haemorrhage [None]
  - Anaemia [None]
  - Intestinal resection [None]
  - Hypotension [None]

NARRATIVE: CASE EVENT DATE: 20180630
